FAERS Safety Report 4919435-3 (Version None)
Quarter: 2006Q1

REPORT INFORMATION
  Report Type: 
  Country: None (occurrence: None)
  Receive Date: 20060222
  Receipt Date: 20051005
  Transmission Date: 20060701
  Serious: Yes (Hospitalization, Disabling, Other)
  Sender: FDA-Public Use
  Company Number: US-MERCK-0510USA03862

PATIENT
  Age: 63 Year
  Sex: Female
  Weight: 127 kg

DRUGS (24)
  1. VIOXX [Suspect]
     Indication: OSTEOARTHRITIS
     Route: 048
     Dates: start: 20010529, end: 20041005
  2. ACCURETIC [Concomitant]
     Route: 065
  3. LIPITOR [Concomitant]
     Indication: BLOOD CHOLESTEROL INCREASED
     Route: 065
  4. TOPROL-XL [Concomitant]
     Indication: HYPERTENSION
     Route: 065
  5. FLORICAL [Concomitant]
     Route: 065
  6. PREMPRO [Concomitant]
     Indication: MENOPAUSE
     Route: 065
  7. AMITRIPTYLIN [Concomitant]
     Indication: BLADDER DISORDER
     Route: 065
  8. AMITRIPTYLIN [Concomitant]
     Indication: ENURESIS
     Route: 065
  9. NORVASC [Concomitant]
     Indication: BLOOD PRESSURE
     Route: 065
  10. ALPRAZOLAM [Concomitant]
     Route: 065
  11. OMEPRAZOLE [Concomitant]
     Indication: GASTROOESOPHAGEAL REFLUX DISEASE
     Route: 065
  12. QUINARETIC [Concomitant]
     Indication: BLOOD PRESSURE
     Route: 065
  13. QUINARETIC [Concomitant]
     Indication: FLUID RETENTION
     Route: 065
  14. ATENOLOL [Concomitant]
     Indication: HYPERTENSION
     Route: 065
  15. NAPROXEN [Concomitant]
     Indication: ARTHRALGIA
     Route: 065
  16. ALTACE [Concomitant]
     Route: 065
  17. NIZORAL [Concomitant]
     Route: 065
  18. ZOCOR [Concomitant]
     Route: 065
  19. VOLTAREN [Concomitant]
     Route: 065
  20. PRAVACHOL [Concomitant]
     Route: 065
  21. ACCUPRIL [Concomitant]
     Route: 065
  22. CYCLOBENZAPRINE HYDROCHLORIDE [Concomitant]
     Route: 065
  23. VALTREX [Concomitant]
     Route: 065
  24. DIAZEPAM [Concomitant]
     Route: 065

REACTIONS (11)
  - ATRIAL FIBRILLATION [None]
  - BACK PAIN [None]
  - CARDIAC FAILURE CONGESTIVE [None]
  - CHEST PAIN [None]
  - DEAFNESS NEUROSENSORY [None]
  - DYSPNOEA [None]
  - FAECALOMA [None]
  - FATIGUE [None]
  - MYOCARDIAL INFARCTION [None]
  - OSTEOARTHRITIS [None]
  - PNEUMONIA [None]
